FAERS Safety Report 24755466 (Version 9)
Quarter: 2025Q3

REPORT INFORMATION
  Report Type: Report from Study
  Country: US (occurrence: US)
  Receive Date: 20241219
  Receipt Date: 20250926
  Transmission Date: 20251020
  Serious: Yes (Hospitalization, Other)
  Sender: SYNDAX
  Company Number: US-SYNDAX PHARMACEUTICALS, INC.-2024US000583

PATIENT
  Sex: Male
  Weight: 70.295 kg

DRUGS (15)
  1. REVUFORJ [Suspect]
     Active Substance: REVUMENIB CITRATE
     Indication: Acute myeloid leukaemia recurrent
     Dosage: 160 MILLIGRAM, BID
     Route: 048
     Dates: start: 20241130
  2. REVUFORJ [Suspect]
     Active Substance: REVUMENIB CITRATE
     Dosage: 25 MILLIGRAM, BID
     Route: 048
     Dates: start: 20241130
  3. ONDANSETRON HYDROCHLORIDE [Concomitant]
     Active Substance: ONDANSETRON HYDROCHLORIDE
     Indication: Product used for unknown indication
     Route: 065
  4. FOLIC ACID [Concomitant]
     Active Substance: FOLIC ACID
     Indication: Product used for unknown indication
     Route: 065
  5. LEVOFLOXACIN [Concomitant]
     Active Substance: LEVOFLOXACIN
     Indication: Product used for unknown indication
     Route: 065
  6. MULTIVITAMINS                      /07504101/ [Concomitant]
     Indication: Product used for unknown indication
     Route: 065
  7. ALBUTEROL SULFATE [Concomitant]
     Active Substance: ALBUTEROL SULFATE
     Indication: Product used for unknown indication
     Route: 065
  8. ACYCLOVIR [Concomitant]
     Active Substance: ACYCLOVIR
     Indication: Product used for unknown indication
     Route: 065
  9. BACTRIM DS [Concomitant]
     Active Substance: SULFAMETHOXAZOLE\TRIMETHOPRIM
     Indication: Product used for unknown indication
     Route: 065
  10. CLARITIN                           /00917501/ [Concomitant]
     Indication: Product used for unknown indication
     Route: 065
  11. FLUCONAZOLE [Concomitant]
     Active Substance: FLUCONAZOLE
     Indication: Product used for unknown indication
     Route: 065
  12. PANTOPRAZOLE SODIUM [Concomitant]
     Active Substance: PANTOPRAZOLE SODIUM
     Indication: Product used for unknown indication
     Route: 065
  13. LETERMOVIR [Concomitant]
     Active Substance: LETERMOVIR
     Indication: Product used for unknown indication
     Route: 065
  14. TACROLIMUS [Concomitant]
     Active Substance: TACROLIMUS
     Indication: Product used for unknown indication
     Route: 065
  15. COMPLETE OMEGA 3 6 9 [Concomitant]
     Indication: Product used for unknown indication
     Route: 065

REACTIONS (14)
  - Pulmonary oedema [Recovered/Resolved]
  - Platelet count decreased [Unknown]
  - Differentiation syndrome [Recovered/Resolved]
  - Heart rate decreased [Recovered/Resolved]
  - Bone pain [Recovered/Resolved]
  - Circadian rhythm sleep disorder [Not Recovered/Not Resolved]
  - Fatigue [Recovering/Resolving]
  - Myalgia [Recovered/Resolved]
  - Diarrhoea [Recovering/Resolving]
  - Nausea [Recovered/Resolved]
  - Vomiting [Recovered/Resolved]
  - Hepatic enzyme increased [Not Recovered/Not Resolved]
  - Liver disorder [Unknown]
  - Product dose omission issue [Recovered/Resolved]
